FAERS Safety Report 17145010 (Version 2)
Quarter: 2019Q4

REPORT INFORMATION
  Report Type: Spontaneous
  Country: SE (occurrence: SE)
  Receive Date: 20191212
  Receipt Date: 20191217
  Transmission Date: 20200122
  Serious: Yes (Hospitalization)
  Sender: FDA-Public Use
  Company Number: SE-PFIZER INC-2019535478

PATIENT
  Sex: Female

DRUGS (5)
  1. IMOVANE [Suspect]
     Active Substance: ZOPICLONE
     Dosage: UNK, (3 IMOVANE)
     Route: 048
     Dates: start: 20180623, end: 20180623
  2. RAMIPRIL. [Suspect]
     Active Substance: RAMIPRIL
     Dosage: UNK, (2 UNIT)
     Route: 048
     Dates: start: 20180623, end: 20180623
  3. STESOLID [Suspect]
     Active Substance: DIAZEPAM
     Dosage: UNK, (5 STESOLID)
     Route: 048
     Dates: start: 20180623, end: 20180623
  4. PROPAVAN [Suspect]
     Active Substance: PROPIOMAZINE
     Dosage: UNK (6 PROPAVAN)
     Route: 048
     Dates: start: 20180623, end: 20180623
  5. IMDUR [Suspect]
     Active Substance: ISOSORBIDE MONONITRATE
     Dosage: 30 MG, UNK
     Route: 048
     Dates: start: 20180623, end: 20180623

REACTIONS (2)
  - Intentional self-injury [Unknown]
  - Intentional overdose [Unknown]

NARRATIVE: CASE EVENT DATE: 20180623
